FAERS Safety Report 6581230-X (Version None)
Quarter: 2010Q1

REPORT INFORMATION
  Report Type: 
  Country: None (occurrence: None)
  Receive Date: 20100203
  Receipt Date: 20100118
  Transmission Date: 20100710
  Serious: Yes (Death)
  Sender: FDA-Public Use
  Company Number: B0627097A

PATIENT
  Age: 69 Year
  Sex: Female

DRUGS (10)
  1. ACETAMINOPHEN [Suspect]
     Dosage: ORAL
     Route: 048
  2. QUETIAPINE [Suspect]
     Dosage: ORAL
     Route: 048
  3. CLOPIDOGREL [Suspect]
     Dosage: ORAL
     Route: 048
  4. FLUTICASONE PROPIONATE+SALMETEROL XINAFOATE (FORMULATION UNK (FLUTICAS [Suspect]
     Dosage: ORAL
     Route: 048
  5. SALICYLATE (FORMULATION UNKNOWN) (SALICYLATE) [Suspect]
     Dosage: ORAL
     Route: 048
  6. DULOXETINE HYDROCHLORIDE [Suspect]
     Dosage: ORAL
     Route: 048
  7. ZOLPIDEM [Suspect]
     Dosage: ORAL
     Route: 048
  8. TIOTROPIUM (FORMULATION UNKNOWN) (TIOTROPIUM) [Suspect]
  9. BENZODIAZEPINES (FORMULATION UNKNOWN) (BENZODIAZEPINES) [Suspect]
     Dosage: ORAL
     Route: 048
  10. UNKNOWN (FORMULATION UNKNOWN) (UNKNOWN) [Suspect]
     Dosage: ORAL
     Route: 048

REACTIONS (1)
  - COMPLETED SUICIDE [None]
